FAERS Safety Report 13954470 (Version 1)
Quarter: 2017Q3

REPORT INFORMATION
  Report Type: Spontaneous
  Country: DE (occurrence: DE)
  Receive Date: 20170911
  Receipt Date: 20170911
  Transmission Date: 20171128
  Serious: Yes (Other)
  Sender: FDA-Public Use
  Company Number: DE-ASCEND THERAPEUTICS-2025843

PATIENT
  Age: 70 Year
  Sex: Female

DRUGS (2)
  1. UTROGESTAN [Suspect]
     Active Substance: PROGESTERONE
     Route: 048
  2. ESTROGEL [Suspect]
     Active Substance: ESTRADIOL
     Indication: HORMONE REPLACEMENT THERAPY
     Route: 062

REACTIONS (1)
  - Deep vein thrombosis [Unknown]
